FAERS Safety Report 7518715-5 (Version None)
Quarter: 2011Q2

REPORT INFORMATION
  Report Type: 
  Country: None (occurrence: None)
  Receive Date: 20110602
  Receipt Date: 20110519
  Transmission Date: 20111010
  Serious: Yes (Other)
  Sender: FDA-Public Use
  Company Number: PHHY2009CA24728

PATIENT
  Sex: Female
  Weight: 76.5 kg

DRUGS (6)
  1. SYNTHROID [Concomitant]
     Dosage: 100 UNK, UNK
     Route: 048
     Dates: start: 20080528
  2. LIPITOR [Concomitant]
     Indication: HYPERCHOLESTEROLAEMIA
     Dosage: 10 MG, QHS
     Route: 048
     Dates: start: 20050202
  3. ATACAND [Concomitant]
     Indication: HYPERTENSION
     Dosage: 32 MG, QD
     Route: 048
  4. ZOLEDRONIC ACID [Suspect]
     Indication: OSTEOPOROSIS
     Dosage: 5 MG
     Route: 042
     Dates: start: 20090615
  5. ZOLEDRONIC ACID [Suspect]
     Dosage: 5 MG,
     Route: 042
     Dates: start: 20100616
  6. VENTOLIN [Concomitant]
     Dosage: UNK
     Dates: start: 20110513

REACTIONS (10)
  - PRURITUS [None]
  - PAIN [None]
  - MIGRAINE [None]
  - URTICARIA [None]
  - DERMATITIS ALLERGIC [None]
  - DYSGEUSIA [None]
  - PYREXIA [None]
  - TONGUE OEDEMA [None]
  - LIP SWELLING [None]
  - CHILLS [None]
